FAERS Safety Report 13737570 (Version 1)
Quarter: 2017Q3

REPORT INFORMATION
  Report Type: Spontaneous
  Country: US (occurrence: US)
  Receive Date: 20170710
  Receipt Date: 20170710
  Transmission Date: 20171127
  Serious: Yes (Hospitalization, Other)
  Sender: FDA-Public Use
  Company Number: US-SAOL THERAPEUTICS-2016SAO00929

PATIENT
  Age: 13 Year
  Sex: Male
  Weight: 42 kg

DRUGS (10)
  1. LIORESAL [Suspect]
     Active Substance: BACLOFEN
     Indication: MUSCLE SPASTICITY
     Dosage: 949.1 ?G, \DAY
     Route: 037
  2. MIRALAX [Concomitant]
     Active Substance: POLYETHYLENE GLYCOL 3350
  3. CLONAZEPAM. [Concomitant]
     Active Substance: CLONAZEPAM
  4. CETERIZINE [Concomitant]
  5. ZONISAMIDE. [Concomitant]
     Active Substance: ZONISAMIDE
  6. FLOVENT [Concomitant]
     Active Substance: FLUTICASONE PROPIONATE
  7. KEPPRA [Concomitant]
     Active Substance: LEVETIRACETAM
  8. ALBUTEROL. [Concomitant]
     Active Substance: ALBUTEROL
  9. GLYCOPYRROLATE. [Concomitant]
     Active Substance: GLYCOPYRROLATE
  10. MOM [Concomitant]
     Active Substance: MAGNESIUM HYDROXIDE

REACTIONS (5)
  - Withdrawal syndrome [Recovered/Resolved]
  - Urinary retention [Unknown]
  - Hypertonia [Recovered/Resolved]
  - Irritability [Unknown]
  - Device infusion issue [Unknown]

NARRATIVE: CASE EVENT DATE: 2016
